FAERS Safety Report 9422002 (Version 1)
Quarter: 2013Q3

REPORT INFORMATION
  Report Type: Spontaneous
  Country: JP (occurrence: JP)
  Receive Date: 20130726
  Receipt Date: 20130726
  Transmission Date: 20140515
  Serious: Yes (Other)
  Sender: FDA-Public Use
  Company Number: JP-JNJFOC-20130712653

PATIENT
  Sex: 0

DRUGS (3)
  1. INFLIXIMAB, RECOMBINANT [Suspect]
     Indication: RHEUMATOID ARTHRITIS
     Dosage: DOSAGE FREQUENCY: 0, 2, 6 AND EVERY 8 WEEKS AFTER WEEK 6
     Route: 042
  2. PREDNISOLONE [Concomitant]
     Route: 065
  3. METHOTREXATE [Concomitant]
     Route: 065

REACTIONS (5)
  - Interstitial lung disease [Unknown]
  - Hypersensitivity [Unknown]
  - Infection [Unknown]
  - Neoplasm malignant [Unknown]
  - Drug ineffective [Unknown]
